FAERS Safety Report 18109622 (Version 1)
Quarter: 2020Q3

REPORT INFORMATION
  Report Type: Spontaneous
  Country: US (occurrence: US)
  Receive Date: 20200804
  Receipt Date: 20200804
  Transmission Date: 20201103
  Serious: Yes (Death)
  Sender: FDA-Public Use
  Company Number: US-CURIUM-202000261

PATIENT

DRUGS (3)
  1. DESICCATED THYROID EXTRACT [Concomitant]
     Indication: PRODUCT USED FOR UNKNOWN INDICATION
     Route: 065
  2. LEVOTHYROXINE. [Concomitant]
     Active Substance: LEVOTHYROXINE
     Indication: PRODUCT USED FOR UNKNOWN INDICATION
     Route: 065
  3. SODIUM IODIDE I 131 [Suspect]
     Active Substance: SODIUM IODIDE I-131
     Indication: RADIOACTIVE IODINE THERAPY
     Dosage: ADMINISTERED 4 YEARS BEFORE TO MOTHER
     Route: 065

REACTIONS (3)
  - Hyperthyroidism [Fatal]
  - Hydrops foetalis [Fatal]
  - Goitre [Fatal]
